FAERS Safety Report 8597914-8 (Version None)
Quarter: 2012Q3

REPORT INFORMATION
  Report Type: 
  Country: None (occurrence: None)
  Receive Date: 20120816
  Receipt Date: 20120809
  Transmission Date: 20120928
  Serious: Yes (Other)
  Sender: FDA-Public Use
  Company Number: US-ASTELLAS-2012US006918

PATIENT
  Sex: Female
  Weight: 111 kg

DRUGS (3)
  1. VALPROIC ACID [Concomitant]
     Indication: PRODUCT USED FOR UNKNOWN INDICATION
     Dosage: UNK
     Route: 065
  2. ERLOTINIB HYDROCHLORIDE [Suspect]
     Indication: NON-SMALL CELL LUNG CANCER
     Dosage: 1 DF, UID/QD
     Route: 048
     Dates: start: 20111101, end: 20120101
  3. ERLOTINIB HYDROCHLORIDE [Suspect]
     Dosage: UNK
     Route: 048

REACTIONS (3)
  - RASH [None]
  - AMNESIA [None]
  - PRURITUS [None]
